FAERS Safety Report 20052939 (Version 1)
Quarter: 2021Q4

REPORT INFORMATION
  Report Type: Spontaneous
  Country: US (occurrence: US)
  Receive Date: 20211110
  Receipt Date: 20211110
  Transmission Date: 20220304
  Serious: No
  Sender: FDA-Public Use
  Company Number: US-UNITED THERAPEUTICS-UNT-2021-021744

PATIENT
  Age: 38 Year
  Sex: Female

DRUGS (4)
  1. REMODULIN [Suspect]
     Active Substance: TREPROSTINIL
     Indication: Pulmonary arterial hypertension
     Dosage: UNK UNK, CONTINUING
     Route: 058
     Dates: start: 20211022
  2. REMODULIN [Suspect]
     Active Substance: TREPROSTINIL
     Dosage: 0.0106 ?G/KG, CONTINUING
     Route: 058
     Dates: start: 202110
  3. REMODULIN [Suspect]
     Active Substance: TREPROSTINIL
     Dosage: 0.010 ?G/KG, CONTINUING
     Route: 058
     Dates: start: 202110
  4. LETAIRIS [Concomitant]
     Active Substance: AMBRISENTAN
     Indication: Product used for unknown indication
     Route: 065

REACTIONS (6)
  - Infusion site erythema [Unknown]
  - Infusion site warmth [Unknown]
  - Infusion site pain [Unknown]
  - Pain [Unknown]
  - Injury [Unknown]
  - Induration [Unknown]

NARRATIVE: CASE EVENT DATE: 20211001
